FAERS Safety Report 6606470-2 (Version None)
Quarter: 2010Q1

REPORT INFORMATION
  Report Type: 
  Country: None (occurrence: None)
  Receive Date: 20100226
  Receipt Date: 20100215
  Transmission Date: 20100710
  Serious: Yes (Hospitalization)
  Sender: FDA-Public Use
  Company Number: PHHY2009JP33679

PATIENT
  Age: 50 Year
  Sex: Male

DRUGS (1)
  1. DIOVAN [Suspect]
     Dosage: 40 MG DAILY
     Route: 048

REACTIONS (5)
  - DIZZINESS [None]
  - HYPOTENSION [None]
  - LOSS OF CONSCIOUSNESS [None]
  - MENIERE'S DISEASE [None]
  - VOMITING [None]
